FAERS Safety Report 21051335 (Version 3)
Quarter: 2022Q4

REPORT INFORMATION
  Report Type: Report from Study
  Country: MX (occurrence: MX)
  Receive Date: 20220707
  Receipt Date: 20221115
  Transmission Date: 20230113
  Serious: Yes (Other)
  Sender: FDA-Public Use
  Company Number: MX-UCBSA-2022035546

PATIENT
  Age: 61 Year
  Sex: Male
  Weight: 85 kg

DRUGS (8)
  1. ROTIGOTINE [Suspect]
     Active Substance: ROTIGOTINE
     Indication: Parkinson^s disease
     Dosage: 6 MILLIGRAM, ONCE DAILY (QD)
     Route: 062
     Dates: start: 20220331, end: 202204
  2. ROTIGOTINE [Suspect]
     Active Substance: ROTIGOTINE
     Dosage: 6MG HALF PATCH EVERY 24 HOURS
     Route: 062
     Dates: start: 202204, end: 202204
  3. ROTIGOTINE [Suspect]
     Active Substance: ROTIGOTINE
     Dosage: 4 MILLIGRAM, ONCE DAILY (QD)
     Route: 062
     Dates: start: 202204
  4. PRAMIPEXOLE [Concomitant]
     Active Substance: PRAMIPEXOLE
     Indication: Product used for unknown indication
     Dosage: UNK
  5. CARBIDOPA [Concomitant]
     Active Substance: CARBIDOPA
     Indication: Product used for unknown indication
  6. CLONAZEPAM [Concomitant]
     Active Substance: CLONAZEPAM
     Indication: Product used for unknown indication
  7. GABAPENTIN [Concomitant]
     Active Substance: GABAPENTIN
     Indication: Product used for unknown indication
  8. QATTIQ [Concomitant]
     Indication: Feeling of relaxation

REACTIONS (17)
  - Chromaturia [Unknown]
  - Nausea [Recovered/Resolved]
  - Adverse event [Recovered/Resolved]
  - Discomfort [Recovered/Resolved]
  - Restless legs syndrome [Recovering/Resolving]
  - Insomnia [Recovering/Resolving]
  - Feeling of despair [Recovering/Resolving]
  - Headache [Recovered/Resolved]
  - Musculoskeletal stiffness [Recovering/Resolving]
  - Myalgia [Recovering/Resolving]
  - Muscle spasms [Recovering/Resolving]
  - Vomiting [Unknown]
  - Weight decreased [Unknown]
  - Stress [Unknown]
  - Limb discomfort [Unknown]
  - Finger deformity [Unknown]
  - Off label use [Unknown]

NARRATIVE: CASE EVENT DATE: 20220401
